FAERS Safety Report 11378918 (Version 1)
Quarter: 2015Q3

REPORT INFORMATION
  Report Type: Spontaneous
  Country: US (occurrence: US)
  Receive Date: 20150811
  Receipt Date: 20150811
  Transmission Date: 20151125
  Serious: No
  Sender: FDA-Public Use
  Company Number: US-ELI_LILLY_AND_COMPANY-US200803005074

PATIENT
  Sex: Male

DRUGS (2)
  1. ATENOLOL. [Concomitant]
     Active Substance: ATENOLOL
     Indication: HYPERTENSION
  2. CIALIS [Suspect]
     Active Substance: TADALAFIL
     Dosage: 5 MG, MONTHLY (1/M)

REACTIONS (5)
  - Rhinorrhoea [Unknown]
  - Headache [Unknown]
  - Ocular hyperaemia [Unknown]
  - Flushing [Unknown]
  - Asthenopia [Unknown]
